FAERS Safety Report 7099428-3 (Version None)
Quarter: 2010Q4

REPORT INFORMATION
  Report Type: 
  Country: None (occurrence: None)
  Receive Date: 20101112
  Receipt Date: 20080915
  Transmission Date: 20110411
  Serious: No
  Sender: FDA-Public Use
  Company Number: US-KINGPHARMUSA00001-K200801086

PATIENT
  Age: 19 Year
  Sex: Female
  Weight: 55.329 kg

DRUGS (3)
  1. LEVOXYL [Suspect]
     Indication: HYPOTHYROIDISM
     Dosage: 175 MCG, QD
     Route: 048
     Dates: start: 20080906, end: 20080914
  2. CYTOMEL [Suspect]
     Indication: HYPOTHYROIDISM
     Dosage: 5 MCG, BID
     Route: 048
     Dates: start: 20080906
  3. GLUCOPHAGE [Concomitant]
     Indication: INSULIN RESISTANCE
     Dosage: 500 MG, TID
     Dates: start: 20060101

REACTIONS (3)
  - ARTHRALGIA [None]
  - FLUSHING [None]
  - SWELLING [None]
